FAERS Safety Report 4563936-7 (Version None)
Quarter: 2005Q1

REPORT INFORMATION
  Report Type: 
  Country: None (occurrence: None)
  Receive Date: 20050128
  Receipt Date: 20050118
  Transmission Date: 20050727
  Serious: Yes (Hospitalization)
  Sender: FDA-Public Use
  Company Number: US-JNJFOC-20041000984

PATIENT
  Sex: Male
  Weight: 70.31 kg

DRUGS (4)
  1. DURAGESIC [Suspect]
     Route: 062
  2. DURAGESIC [Suspect]
     Route: 062
  3. VALIUM [Suspect]
     Indication: DRUG USE FOR UNKNOWN INDICATION
  4. NEURONTIN [Concomitant]

REACTIONS (15)
  - ABDOMINAL PAIN UPPER [None]
  - ANXIETY [None]
  - ASTHENIA [None]
  - BACK PAIN [None]
  - BLOOD PRESSURE DECREASED [None]
  - CHEST PAIN [None]
  - CHEST WALL PAIN [None]
  - COMA [None]
  - CONVERSION DISORDER [None]
  - DEPRESSION [None]
  - GASTROENTERITIS VIRAL [None]
  - HYPOAESTHESIA [None]
  - INSOMNIA [None]
  - MENTAL STATUS CHANGES [None]
  - PAIN IN EXTREMITY [None]
